FAERS Safety Report 18638838 (Version 1)
Quarter: 2020Q4

REPORT INFORMATION
  Report Type: Spontaneous
  Country: NL (occurrence: NL)
  Receive Date: 20201219
  Receipt Date: 20201219
  Transmission Date: 20210114
  Serious: Yes (Other)
  Sender: FDA-Public Use
  Company Number: NL-ACCORD-211148

PATIENT
  Age: 24 Year
  Sex: Male
  Weight: 71 kg

DRUGS (1)
  1. METHOTREXATE. [Suspect]
     Active Substance: METHOTREXATE
     Indication: ECZEMA
     Dosage: 2.5 MG / BRAND NAME NOT SPECIFIED,6 TABLETS PER WEEK
     Dates: start: 202003

REACTIONS (1)
  - Cataract [Recovered/Resolved]

NARRATIVE: CASE EVENT DATE: 20200915
